FAERS Safety Report 8395343-3 (Version None)
Quarter: 2012Q2

REPORT INFORMATION
  Report Type: 
  Country: None (occurrence: None)
  Receive Date: 20120530
  Receipt Date: 20120525
  Transmission Date: 20120825
  Serious: Yes (Hospitalization)
  Sender: FDA-Public Use
  Company Number: FR-PFIZER INC-2012126632

PATIENT
  Age: 98 Year
  Sex: Female

DRUGS (6)
  1. PERINDOPRIL ERBUMINE [Suspect]
     Dosage: 5 MG, 1X/DAY
     Route: 048
     Dates: end: 20120223
  2. LASIX [Suspect]
     Dosage: 20 MG, 1X/DAY
     Route: 048
     Dates: end: 20120223
  3. VALSARTAN [Suspect]
     Dosage: 160 MG, 1X/DAY
     Route: 048
     Dates: end: 20120223
  4. CRESTOR [Concomitant]
     Dosage: 5 MG, 1X/DAY
     Route: 048
  5. AMLODIPINE BESYLATE [Suspect]
     Dosage: 10 MG, 1X/DAY
     Route: 048
     Dates: end: 20120223
  6. MODOPAR [Concomitant]
     Dosage: 12.5MG+50MG
     Route: 048

REACTIONS (2)
  - FALL [None]
  - ORTHOSTATIC HYPOTENSION [None]
